FAERS Safety Report 13663774 (Version 1)
Quarter: 2017Q2

REPORT INFORMATION
  Report Type: Spontaneous
  Country: SE (occurrence: SE)
  Receive Date: 20170619
  Receipt Date: 20170619
  Transmission Date: 20170830
  Serious: Yes (Other)
  Sender: FDA-Public Use
  Company Number: SE-JNJFOC-20170607340

PATIENT
  Age: 40 Year
  Sex: Female

DRUGS (2)
  1. IPREN [Suspect]
     Active Substance: IBUPROFEN
     Indication: PYREXIA
     Route: 065
     Dates: start: 20170510, end: 20170510
  2. IPREN [Suspect]
     Active Substance: IBUPROFEN
     Route: 065

REACTIONS (4)
  - Anxiety [Recovered/Resolved]
  - Formication [Recovered/Resolved]
  - Restlessness [Recovered/Resolved]
  - Dyspnoea [Recovered/Resolved]

NARRATIVE: CASE EVENT DATE: 20170510
